FAERS Safety Report 6511174-0 (Version None)
Quarter: 2009Q4

REPORT INFORMATION
  Report Type: 
  Country: None (occurrence: None)
  Receive Date: 20091222
  Receipt Date: 20091216
  Transmission Date: 20100525
  Serious: Yes (Hospitalization)
  Sender: FDA-Public Use
  Company Number: CA-TEVA-141546USA

PATIENT
  Age: 18 Month
  Sex: Female

DRUGS (1)
  1. PIMOZIDE TABLETS [Suspect]
     Dosage: DOSAGE TAKEN UP TO 6MG
     Route: 048

REACTIONS (6)
  - ACCIDENTAL EXPOSURE [None]
  - BLOOD PRESSURE DECREASED [None]
  - DROOLING [None]
  - DYSTONIA [None]
  - SOMNOLENCE [None]
  - UNRESPONSIVE TO STIMULI [None]
